FAERS Safety Report 19100399 (Version 2)
Quarter: 2021Q2

REPORT INFORMATION
  Report Type: Spontaneous
  Country: DE (occurrence: DE)
  Receive Date: 20210407
  Receipt Date: 20210409
  Transmission Date: 20210717
  Serious: Yes (Hospitalization)
  Sender: FDA-Public Use
  Company Number: DE-JNJFOC-20210408413

PATIENT
  Age: 76 Year
  Sex: Female

DRUGS (22)
  1. DECODERM TRI [FLUPREDNIDENE ACETATE;MICONAZOLE NITRATE] [Concomitant]
     Dosage: TWICE A DAY (IN THE MORNING, IN THE EVENING), CREAM
     Route: 061
  2. MEMANTIN [Suspect]
     Active Substance: MEMANTINE
     Indication: PRODUCT USED FOR UNKNOWN INDICATION
     Dosage: 20 MG, ONCE A DAY (IN THE MORNING), TABLETS
     Route: 065
  3. KALINOR [POTASSIUM CHLORIDE] [Concomitant]
     Active Substance: POTASSIUM CHLORIDE
     Dosage: ONCE A DAY (IN THE MORNING), EFFERVESCENT TABLETS
     Route: 065
  4. LACTULOSE. [Concomitant]
     Active Substance: LACTULOSE
     Dosage: 10 ML, TWICE A DAY (IN THE MORNING, IN THE EVENING), SOLUTION
     Route: 065
  5. RAMIPRIL. [Concomitant]
     Active Substance: RAMIPRIL
     Dosage: 5 MG, TWICE A DAY (IN THE MORNING, AT NIGHT), TABLETS
     Route: 065
  6. QUETIAPIN [Suspect]
     Active Substance: QUETIAPINE
     Indication: PRODUCT USED FOR UNKNOWN INDICATION
     Dosage: 25 MG, TWICE A DAY (IN THE MORNING, AT NOON), TABLETS
     Route: 065
  7. MOXONIDIN [Concomitant]
     Active Substance: MOXONIDINE
     Dosage: 0.3 MG, ONCE A DAY (IN THE MORNING), TABLETS
     Route: 065
  8. LEVOTHYROXINE SODIUM. [Concomitant]
     Active Substance: LEVOTHYROXINE SODIUM
     Dosage: 100 UG, HALT A TABLET A DAY (IN THE MORNING), TABLETS
     Route: 065
  9. MAGNESIUM [Concomitant]
     Active Substance: MAGNESIUM
     Dosage: TWICE A DAY (IN THE MORNING, IN THE EVENING), EFFERVESCENT TABLETS
     Route: 065
  10. METAMIZOLE [Concomitant]
     Active Substance: METAMIZOLE
     Dosage: 500 MG, AS REQUIRED, TABLETS
     Route: 065
  11. ATORVASTATIN [Concomitant]
     Active Substance: ATORVASTATIN
     Dosage: 20 MG, ONCE A DAY (IN THE EVENING), TABLETS
     Route: 065
  12. RISPERDAL [Suspect]
     Active Substance: RISPERIDONE
     Indication: PRODUCT USED FOR UNKNOWN INDICATION
     Dosage: 1 MG, HALF A TABLET A DAY (AT NIGHT), TABLETS
     Route: 065
  13. LACTULOSE. [Concomitant]
     Active Substance: LACTULOSE
     Dosage: 20 ML, AS REQUIRED, SOLUTION
     Route: 065
  14. OMEPRAZOLE. [Concomitant]
     Active Substance: OMEPRAZOLE
     Dosage: 20 MG, ONCE A DAY (IN THE MORNING), CAPSULES
     Route: 065
  15. QUETIAPIN [Suspect]
     Active Substance: QUETIAPINE
     Dosage: 50 MG, ONCE A DAY (IN THE EVENING), PROLONGED?RELEASE TABLETS
     Route: 065
  16. ASPIRIN PROTECT [Concomitant]
     Active Substance: ASPIRIN
     Dosage: 100 MG, ONCE A DAY (AT NOON), TABLETS
     Route: 065
  17. AMLODIPINE [Concomitant]
     Active Substance: AMLODIPINE BESYLATE
     Dosage: 5 MG, HALF A TABLET TWICE A DAY (IN THE MORNING, AT NIGHT), TABLETS
     Route: 065
  18. LECICARBON E CO2 LAXANS [Concomitant]
     Dosage: AS REQUIRED, SUPPOSITORIES
     Route: 054
  19. QUETIAPIN [Suspect]
     Active Substance: QUETIAPINE
     Dosage: 25 MG, AS REQUIRED, TABLETS
     Route: 065
  20. TAVOR (LORAZEPAM) [Concomitant]
     Active Substance: LORAZEPAM
     Dosage: 1 MG, AS REQUIRED, TABLETS
     Route: 065
  21. MOVICOL [Concomitant]
     Active Substance: POLYETHYLENE GLYCOL 3350\POTASSIUM CHLORIDE\SODIUM BICARBONATE\SODIUM CHLORIDE
     Dosage: AS REQUIRED, POUCHES/GRANULES
     Route: 065
  22. EBRANTIL [URAPIDIL] [Concomitant]
     Active Substance: URAPIDIL
     Dosage: 60 MG, THREE TIMES A DAY (IN THE MORNING, AT NOON, IN THE EVENING), CAPSULES
     Route: 065

REACTIONS (5)
  - Dehydration [Unknown]
  - Asthenia [Unknown]
  - Somnolence [Unknown]
  - General physical health deterioration [Unknown]
  - Disturbance in attention [Unknown]
